FAERS Safety Report 5685377-1 (Version None)
Quarter: 2008Q1

REPORT INFORMATION
  Report Type: 
  Country: None (occurrence: None)
  Receive Date: 20080328
  Receipt Date: 20080318
  Transmission Date: 20080703
  Serious: Yes (Other)
  Sender: FDA-Public Use
  Company Number: MX-PFIZER INC-2008025364

PATIENT
  Age: 25 Year
  Sex: Female
  Weight: 67.5 kg

DRUGS (19)
  1. ANIDULAFUNGIN [Suspect]
     Route: 042
  2. OMEPRAZOLE [Concomitant]
     Route: 042
  3. METAMIZOLE [Concomitant]
     Route: 042
     Dates: start: 20080307
  4. ALL OTHER THERAPEUTIC PRODUCTS [Concomitant]
     Route: 042
     Dates: start: 20080307
  5. FUROSEMIDE [Concomitant]
     Route: 042
     Dates: start: 20080307
  6. KETOROLAC [Concomitant]
     Route: 042
     Dates: start: 20080307, end: 20080308
  7. COMBIVENT [Concomitant]
     Dates: start: 20080308
  8. PULMICORT [Concomitant]
     Dates: start: 20080308
  9. METHYLPREDNISOLONE [Concomitant]
     Route: 042
     Dates: start: 20080308, end: 20080311
  10. MIDAZOLAM HCL [Concomitant]
     Route: 042
     Dates: start: 20080308, end: 20080311
  11. CEFTRIAXONE [Concomitant]
     Route: 042
     Dates: start: 20080309
  12. CLARITHROMYCIN [Concomitant]
     Dates: start: 20080309, end: 20080311
  13. GENTAMICIN [Concomitant]
     Route: 042
  14. NOREPINEPHRINE [Concomitant]
     Route: 042
  15. DOPAMINE HCL [Concomitant]
     Route: 042
     Dates: start: 20080309
  16. HYDROCORTISONE [Concomitant]
     Route: 042
     Dates: start: 20080312
  17. ENOXAPARIN SODIUM [Concomitant]
     Route: 058
  18. REMIFENTANIL [Concomitant]
     Route: 042
     Dates: start: 20080309
  19. VANCOMYCIN [Concomitant]
     Route: 042
     Dates: start: 20080315

REACTIONS (1)
  - VENTRICULAR TACHYCARDIA [None]
